FAERS Safety Report 12405128 (Version 2)
Quarter: 2017Q4

REPORT INFORMATION
  Report Type: Report from Study
  Country: US (occurrence: US)
  Receive Date: 20160525
  Receipt Date: 20171214
  Transmission Date: 20180320
  Serious: Yes (Hospitalization, Other)
  Sender: FDA-Public Use
  Company Number: US-ACTELION-A-US2016-132632

PATIENT
  Age: 86 Year
  Sex: Female

DRUGS (21)
  1. NYSTATIN. [Concomitant]
     Active Substance: NYSTATIN
  2. TRAMADOL HCL [Concomitant]
     Active Substance: TRAMADOL HYDROCHLORIDE
  3. WARFARIN [Concomitant]
     Active Substance: WARFARIN
  4. DIGOX [Concomitant]
     Active Substance: DIGOXIN
  5. FOLIC ACID. [Concomitant]
     Active Substance: FOLIC ACID
  6. ENOXAPARIN [Concomitant]
     Active Substance: ENOXAPARIN
  7. LEVOTHYROXINE. [Concomitant]
     Active Substance: LEVOTHYROXINE
  8. HYDROCORTONE [Concomitant]
     Active Substance: HYDROCORTISONE
  9. HYDROCODONE BITARTRATE AND ACETAMINOPHEN [Concomitant]
     Active Substance: ACETAMINOPHEN\HYDROCODONE BITARTRATE
  10. SPIRONOLACTONE. [Concomitant]
     Active Substance: SPIRONOLACTONE
  11. METOLAZONE. [Concomitant]
     Active Substance: METOLAZONE
  12. COLCRYS [Concomitant]
     Active Substance: COLCHICINE
  13. ACETAMINOPHEN AND CODEINE [Concomitant]
     Active Substance: ACETAMINOPHEN\CODEINE PHOSPHATE
  14. ADVAIR HFA [Concomitant]
     Active Substance: FLUTICASONE PROPIONATE\SALMETEROL XINAFOATE
  15. TRACLEER [Suspect]
     Active Substance: BOSENTAN
     Indication: PULMONARY ARTERIAL HYPERTENSION
     Dosage: 125 MG, UNK
     Route: 048
     Dates: start: 20121214
  16. PREDNISONE. [Concomitant]
     Active Substance: PREDNISONE
  17. CLINDAMYCIN. [Concomitant]
     Active Substance: CLINDAMYCIN
  18. ALLOPURINOL. [Concomitant]
     Active Substance: ALLOPURINOL
  19. FLUTICASONE PROPIONATE. [Concomitant]
     Active Substance: FLUTICASONE PROPIONATE
  20. OMEPRAZOLE. [Concomitant]
     Active Substance: OMEPRAZOLE
  21. LIOTHYRONINE [Concomitant]
     Active Substance: LIOTHYRONINE

REACTIONS (4)
  - Localised infection [Recovered/Resolved]
  - Ankle fracture [Recovering/Resolving]
  - Skin infection [Unknown]
  - Pyrexia [Recovered/Resolved]
